FAERS Safety Report 25369887 (Version 1)
Quarter: 2025Q2

REPORT INFORMATION
  Report Type: Spontaneous
  Country: FI (occurrence: FI)
  Receive Date: 20250528
  Receipt Date: 20250528
  Transmission Date: 20250716
  Serious: Yes (Other)
  Sender: ABBVIE
  Company Number: None

PATIENT
  Age: 49 Year
  Sex: Female

DRUGS (3)
  1. ESCITALOPRAM [Suspect]
     Active Substance: ESCITALOPRAM OXALATE
     Indication: Depression
     Route: 048
  2. ESCITALOPRAM [Suspect]
     Active Substance: ESCITALOPRAM OXALATE
     Indication: Depression
     Route: 048
  3. ESCITALOPRAM OXALATE [Suspect]
     Active Substance: ESCITALOPRAM OXALATE
     Indication: Depression
     Dosage: 1 TABLET IN THE MORNINGS
     Route: 048

REACTIONS (12)
  - Condition aggravated [Recovered/Resolved]
  - Self-injurious ideation [Recovered/Resolved]
  - Sensory loss [Not Recovered/Not Resolved]
  - Alopecia [Unknown]
  - Fatigue [Recovering/Resolving]
  - Withdrawal syndrome [Not Recovered/Not Resolved]
  - Emotional poverty [Not Recovered/Not Resolved]
  - Loss of libido [Not Recovered/Not Resolved]
  - Sleep apnoea syndrome [Unknown]
  - Heart rate increased [Unknown]
  - Electric shock sensation [Not Recovered/Not Resolved]
  - Somnolence [Recovering/Resolving]
